FAERS Safety Report 16873496 (Version 3)
Quarter: 2020Q4

REPORT INFORMATION
  Report Type: Spontaneous
  Country: US (occurrence: US)
  Receive Date: 20191001
  Receipt Date: 20201023
  Transmission Date: 20210113
  Serious: No
  Sender: FDA-Public Use
  Company Number: US-PFIZER INC-2019419677

PATIENT
  Age: 63 Year
  Sex: Female
  Weight: 59.87 kg

DRUGS (1)
  1. NICOTROL [Suspect]
     Active Substance: NICOTINE
     Indication: NICOTINE DEPENDENCE
     Dosage: 10 MG/ML, DAILY (1 SPRAY PER NOSTRIL, UP TO TEN TIMES PER DAY 30 DAYS; DISPENSE: 120)
     Route: 045
     Dates: start: 2001

REACTIONS (2)
  - Panic attack [Unknown]
  - Intentional product use issue [Unknown]
